FAERS Safety Report 4538285-3 (Version None)
Quarter: 2004Q4

REPORT INFORMATION
  Report Type: 
  Country: None (occurrence: None)
  Receive Date: 20041221
  Receipt Date: 20041118
  Transmission Date: 20050328
  Serious: Yes (Death)
  Sender: FDA-Public Use
  Company Number: MK200412-0049-1

PATIENT
  Age: 65 Year

DRUGS (3)
  1. METHADOSE           METHADONE HYDROCHLORIDE [Suspect]
     Dates: end: 20030101
  2. DIAZEPAM [Suspect]
  3. ALPRAZOLAM [Suspect]

REACTIONS (1)
  - MULTIPLE DRUG OVERDOSE INTENTIONAL [None]
